FAERS Safety Report 15388377 (Version 4)
Quarter: 2018Q4

REPORT INFORMATION
  Report Type: Report from Study
  Country: US (occurrence: US)
  Receive Date: 20180915
  Receipt Date: 20181221
  Transmission Date: 20190204
  Serious: No
  Sender: FDA-Public Use
  Company Number: PHHY2018US098738

PATIENT
  Sex: Male

DRUGS (1)
  1. COSENTYX [Suspect]
     Active Substance: SECUKINUMAB
     Indication: PSORIASIS
     Dosage: 300 MG, QMO
     Route: 058

REACTIONS (7)
  - Drug ineffective [Unknown]
  - Nasopharyngitis [Unknown]
  - Macule [Unknown]
  - Cystitis [Unknown]
  - Dry skin [Unknown]
  - Pain [Recovering/Resolving]
  - Influenza [Recovered/Resolved]
